FAERS Safety Report 13726359 (Version 1)
Quarter: 2017Q3

REPORT INFORMATION
  Report Type: Spontaneous
  Country: US (occurrence: US)
  Receive Date: 20170707
  Receipt Date: 20170707
  Transmission Date: 20171127
  Serious: Yes (Other)
  Sender: FDA-Public Use
  Company Number: None

PATIENT
  Age: 41 Year
  Sex: Male
  Weight: 130.5 kg

DRUGS (5)
  1. STATINS [Concomitant]
     Active Substance: UNSPECIFIED INGREDIENT
  2. CHANTIX [Suspect]
     Active Substance: VARENICLINE TARTRATE
     Indication: NICOTINE DEPENDENCE
     Route: 048
     Dates: start: 20170523, end: 20170623
  3. PREVACID [Concomitant]
     Active Substance: LANSOPRAZOLE
  4. BABY ASPIRIN [Concomitant]
     Active Substance: ASPIRIN
  5. COZAAR [Concomitant]
     Active Substance: LOSARTAN POTASSIUM

REACTIONS (7)
  - Irritability [None]
  - Mood altered [None]
  - Insomnia [None]
  - Aggression [None]
  - Anger [None]
  - Abnormal behaviour [None]
  - Abnormal dreams [None]

NARRATIVE: CASE EVENT DATE: 20170523
